FAERS Safety Report 11410888 (Version 2)
Quarter: 2015Q3

REPORT INFORMATION
  Report Type: Report from Study
  Country: NL (occurrence: NL)
  Receive Date: 20150824
  Receipt Date: 20150826
  Transmission Date: 20151125
  Serious: Yes (Hospitalization, Other)
  Sender: FDA-Public Use
  Company Number: NL-TEVA-587966ISR

PATIENT
  Age: 68 Year
  Sex: Female

DRUGS (12)
  1. PACLITAXEL. [Suspect]
     Active Substance: PACLITAXEL
     Indication: BREAST CANCER METASTATIC
     Dosage: 177 MILLIGRAM DAILY;
     Route: 042
     Dates: start: 20140924, end: 20150527
  2. AVASTIN [Suspect]
     Active Substance: BEVACIZUMAB
     Indication: BREAST CANCER METASTATIC
     Dosage: 800 MILLIGRAM DAILY;
     Route: 042
     Dates: start: 20140924, end: 20150610
  3. METOPROLOL [Concomitant]
     Active Substance: METOPROLOL
     Dosage: 25 MILLIGRAM DAILY;
     Dates: end: 20150807
  4. OXYCODON 5 MG [Concomitant]
     Dates: start: 20140814
  5. ESOMEPRAZOL 40MG [Concomitant]
     Dates: end: 20150811
  6. MACROGOL [Concomitant]
     Active Substance: POLYETHYLENE GLYCOLS
     Dates: start: 20140924
  7. OXAZEPAM. [Concomitant]
     Active Substance: OXAZEPAM
     Dosage: 30 MILLIGRAM DAILY;
  8. CARBASALATE CALCIUM [Concomitant]
     Active Substance: CARBASALATE
     Dosage: 100 MILLIGRAM DAILY;
     Dates: start: 20150330, end: 20150811
  9. MYOCET [Suspect]
     Active Substance: DOXORUBICIN
     Indication: BREAST CANCER METASTATIC
     Dosage: 0 MILLIGRAM DAILY;
     Route: 042
  10. LISINOPRIL. [Concomitant]
     Active Substance: LISINOPRIL
     Dosage: 20 MILLIGRAM DAILY;
     Dates: start: 20150330
  11. AMLODIPINE [Concomitant]
     Active Substance: AMLODIPINE BESYLATE
     Dosage: 5 MILLIGRAM DAILY;
     Dates: start: 20150630, end: 20150809
  12. GABAPENTIN. [Concomitant]
     Active Substance: GABAPENTIN
     Dosage: 600 MILLIGRAM DAILY;
     Dates: start: 20140820

REACTIONS (1)
  - Cerebrovascular accident [Recovered/Resolved]

NARRATIVE: CASE EVENT DATE: 20150807
